FAERS Safety Report 4335180-X (Version None)
Quarter: 2004Q2

REPORT INFORMATION
  Report Type: 
  Country: None (occurrence: None)
  Receive Date: 20040402
  Receipt Date: 20040216
  Transmission Date: 20050107
  Serious: No
  Sender: FDA-Public Use
  Company Number: 235434

PATIENT
  Age: 36 Year
  Sex: Male
  Weight: 115.6 kg

DRUGS (1)
  1. NOVOLOG [Suspect]
     Indication: INSULIN-REQUIRING TYPE II DIABETES MELLITUS
     Dosage: 10-20 UNITS AC MEALS; SUBCUTANEOUS
     Route: 058
     Dates: start: 20030101

REACTIONS (1)
  - BLOOD GLUCOSE INCREASED [None]
